FAERS Safety Report 8994087 (Version 3)
Quarter: 2014Q1

REPORT INFORMATION
  Report Type: Spontaneous
  Country: US (occurrence: US)
  Receive Date: 20130102
  Receipt Date: 20140102
  Transmission Date: 20141002
  Serious: No
  Sender: FDA-Public Use
  Company Number: US-AMGEN-USASP2012082583

PATIENT
  Age: 30 Year
  Sex: Female
  Weight: 81.18 kg

DRUGS (4)
  1. ENBREL [Suspect]
     Indication: PSORIATIC ARTHROPATHY
     Dosage: 50 MG, WEEKLY
     Route: 065
     Dates: start: 20110216, end: 201210
  2. ENBREL [Suspect]
     Indication: PSORIASIS
  3. PRENATAL VITAMINS                  /02014401/ [Concomitant]
     Dosage: 1 DAILY
  4. ZOLOFT [Concomitant]
     Dosage: 100 MG, QD

REACTIONS (2)
  - Platelet count decreased [Recovered/Resolved]
  - Psoriasis [Not Recovered/Not Resolved]
